FAERS Safety Report 14082718 (Version 1)
Quarter: 2017Q4

REPORT INFORMATION
  Report Type: Spontaneous
  Country: US (occurrence: US)
  Receive Date: 20171012
  Receipt Date: 20171012
  Transmission Date: 20180321
  Serious: No
  Sender: FDA-Public Use
  Company Number: US-MYLANLABS-2017M1054533

PATIENT

DRUGS (1)
  1. TAMOXIFEN [Suspect]
     Active Substance: TAMOXIFEN
     Indication: PRODUCT USED FOR UNKNOWN INDICATION
     Dosage: UNK

REACTIONS (12)
  - Vision blurred [Unknown]
  - Panic disorder [Unknown]
  - Depressed mood [Unknown]
  - Pain [Unknown]
  - Headache [Unknown]
  - Breast tenderness [Unknown]
  - Premenstrual syndrome [Unknown]
  - Muscle spasms [Unknown]
  - Dyspepsia [Unknown]
  - Breast engorgement [Unknown]
  - Anxiety [Unknown]
  - Feeling abnormal [Unknown]
